FAERS Safety Report 5110942-X (Version None)
Quarter: 2006Q3

REPORT INFORMATION
  Report Type: 
  Country: None (occurrence: None)
  Receive Date: 20060920
  Receipt Date: 20060920
  Transmission Date: 20061208
  Serious: Yes (Other)
  Sender: FDA-Public Use
  Company Number: None

PATIENT
  Sex: Male
  Weight: 147.419 kg

DRUGS (24)
  1. TORSEMIDE [Suspect]
     Indication: FLUID RETENTION
     Dosage: 100 MG DAILY PO
     Route: 048
     Dates: start: 20060710, end: 20060710
  2. CPAP MACHINE [Concomitant]
  3. OXYGEN [Concomitant]
  4. CENTRIUM SILVER [Concomitant]
  5. FERROUS SULFATE TAB [Concomitant]
  6. VICODIN [Concomitant]
  7. GABAPENTIN [Concomitant]
  8. TRAZODONE HCL [Concomitant]
  9. ASPIRIN [Concomitant]
  10. ECT [Concomitant]
  11. VESICARE [Concomitant]
  12. BUMEX [Concomitant]
  13. ALDACTAZIDE [Concomitant]
  14. METOPROLOL TARTRATE [Concomitant]
  15. LISINOPRIL [Concomitant]
  16. TRICOR [Concomitant]
  17. CITALOPRAM HYDROBROMIDE [Concomitant]
  18. METFORMIN HCL [Concomitant]
  19. GLYNASE [Concomitant]
  20. REGULAR INSULIN ON SLIDING SCALE [Concomitant]
  21. LANTUS [Concomitant]
  22. ONE TOUCH ULTRASMART GLUCOMETER [Concomitant]
  23. SENOKOT [Concomitant]
  24. SUDAFED 12 HOUR [Concomitant]

REACTIONS (1)
  - BLISTER [None]
